FAERS Safety Report 14991155 (Version 1)
Quarter: 2018Q2

REPORT INFORMATION
  Report Type: Spontaneous
  Country: DE (occurrence: DE)
  Receive Date: 20180608
  Receipt Date: 20180608
  Transmission Date: 20180711
  Serious: Yes (Death)
  Sender: FDA-Public Use
  Company Number: DE-ELI_LILLY_AND_COMPANY-DE201806001736

PATIENT
  Age: 63 Year
  Sex: Male
  Weight: 96 kg

DRUGS (1)
  1. TALTZ [Suspect]
     Active Substance: IXEKIZUMAB
     Indication: PSORIASIS
     Dosage: 80 MG, UNKNOWN
     Route: 058
     Dates: start: 201310

REACTIONS (6)
  - Haemolysis [Fatal]
  - Multiple organ dysfunction syndrome [Fatal]
  - Gas gangrene [Fatal]
  - Gastrointestinal necrosis [Fatal]
  - Clostridial infection [Fatal]
  - Septic shock [Fatal]

NARRATIVE: CASE EVENT DATE: 20180423
